FAERS Safety Report 9812980 (Version 1)
Quarter: 2014Q1

REPORT INFORMATION
  Report Type: Spontaneous
  Country: US (occurrence: None)
  Receive Date: 20140108
  Receipt Date: 20140108
  Transmission Date: 20141002
  Serious: Yes (Other)
  Sender: FDA-Public Use
  Company Number: 2014-000005

PATIENT
  Age: 81 Year
  Sex: Female

DRUGS (4)
  1. ACTONEL [Suspect]
     Dates: start: 20130104, end: 20130604
  2. PREVISCAN (FLUIDIONE), 20MG [Concomitant]
  3. FEMARA (LETROZOLE) [Concomitant]
  4. ARIXTRA (FONDAPARINUX SODIUM) [Concomitant]

REACTIONS (6)
  - Lung disorder [None]
  - Eosinophilia [None]
  - C-reactive protein increased [None]
  - Cough [None]
  - Dyspnoea [None]
  - Lung disorder [None]
